FAERS Safety Report 15972647 (Version 2)
Quarter: 2019Q1

REPORT INFORMATION
  Report Type: Spontaneous
  Country: ES (occurrence: ES)
  Receive Date: 20190216
  Receipt Date: 20190227
  Transmission Date: 20190418
  Serious: Yes (Hospitalization, Other)
  Sender: FDA-Public Use
  Company Number: ES-ACCORD-107580

PATIENT
  Age: 50 Year
  Sex: Female

DRUGS (4)
  1. ENOXAPARIN [Interacting]
     Active Substance: ENOXAPARIN
     Indication: ANTICOAGULANT THERAPY
     Dosage: DOSAGE FORM: UNSPECIFIED
     Route: 058
  2. CLOPIDOGREL [Suspect]
     Active Substance: CLOPIDOGREL BISULFATE
     Indication: ANTIPLATELET THERAPY
     Dosage: DOSAGE FORM: UNSPECIFIED
     Route: 065
  3. ABCIXIMAB [Interacting]
     Active Substance: ABCIXIMAB
     Indication: CATHETER PLACEMENT
     Route: 040
  4. ACETYLSALICYLIC ACID [Interacting]
     Active Substance: ASPIRIN
     Indication: ANTIPLATELET THERAPY
     Dosage: DOSAGE FORM: UNSPECIFIED
     Route: 065

REACTIONS (7)
  - Immune thrombocytopenic purpura [Recovered/Resolved]
  - Melaena [Unknown]
  - Ecchymosis [Recovered/Resolved]
  - Petechiae [Recovered/Resolved]
  - Anaemia [Recovering/Resolving]
  - Labelled drug-drug interaction medication error [Unknown]
  - Hypotension [Unknown]
